FAERS Safety Report 18128587 (Version 1)
Quarter: 2020Q3

REPORT INFORMATION
  Report Type: Report from Study
  Country: CA (occurrence: CA)
  Receive Date: 20200810
  Receipt Date: 20200810
  Transmission Date: 20201103
  Serious: Yes (Other)
  Sender: FDA-Public Use
  Company Number: CA-ACCORD-194263

PATIENT
  Age: 59 Year
  Sex: Female
  Weight: 74 kg

DRUGS (10)
  1. RISEDRONIC ACID [Concomitant]
     Active Substance: RISEDRONIC ACID
  2. RITUXIMAB. [Suspect]
     Active Substance: RITUXIMAB
     Indication: RHEUMATOID ARTHRITIS
     Route: 042
  3. SOLU?MEDROL [Concomitant]
     Active Substance: METHYLPREDNISOLONE SODIUM SUCCINATE
     Indication: PREMEDICATION
     Route: 042
  4. RITUXIMAB. [Suspect]
     Active Substance: RITUXIMAB
     Indication: RHEUMATOID ARTHRITIS
     Route: 042
  5. DIPHENHYDRAMINE. [Concomitant]
     Active Substance: DIPHENHYDRAMINE
     Indication: PREMEDICATION
     Route: 048
  6. FOLIC ACID. [Concomitant]
     Active Substance: FOLIC ACID
  7. ARAVA [Concomitant]
     Active Substance: LEFLUNOMIDE
  8. PARACETAMOL [Concomitant]
     Active Substance: ACETAMINOPHEN
     Indication: PREMEDICATION
     Route: 048
  9. ELTROXIN [Concomitant]
     Active Substance: LEVOTHYROXINE
  10. METHOTREXATE. [Suspect]
     Active Substance: METHOTREXATE
     Indication: PRODUCT USED FOR UNKNOWN INDICATION
     Dosage: 1 EVERY 1 WEEKS

REACTIONS (10)
  - Blood pressure fluctuation [Recovered/Resolved]
  - Leukopenia [Recovered/Resolved]
  - Pain [Recovered/Resolved]
  - Dermatitis [Recovered/Resolved]
  - Arthralgia [Recovered/Resolved]
  - Blood pressure increased [Recovered/Resolved]
  - Weight increased [Recovered/Resolved]
  - Intentional product use issue [Unknown]
  - Joint swelling [Recovered/Resolved]
  - Swollen joint count [Recovered/Resolved]
